FAERS Safety Report 7956716-3 (Version None)
Quarter: 2011Q4

REPORT INFORMATION
  Report Type: 
  Country: None (occurrence: None)
  Receive Date: 20111205
  Receipt Date: 20111128
  Transmission Date: 20120403
  Serious: Yes (Death)
  Sender: FDA-Public Use
  Company Number: GB-GILEAD-2011-0047521

PATIENT
  Sex: Female

DRUGS (1)
  1. AMBRISENTAN [Suspect]
     Indication: SCLERODERMA
     Dosage: 5MG PER DAY
     Route: 048
     Dates: start: 20091217

REACTIONS (1)
  - DEATH [None]
